FAERS Safety Report 10926146 (Version 1)
Quarter: 2015Q1

REPORT INFORMATION
  Report Type: Spontaneous
  Country: US (occurrence: US)
  Receive Date: 20150318
  Receipt Date: 20150318
  Transmission Date: 20150721
  Serious: Yes (Hospitalization)
  Sender: FDA-Public Use
  Company Number: US-BRISTOL-MYERS SQUIBB COMPANY-BMS-2015-015888

PATIENT
  Age: 88 Year
  Sex: Female

DRUGS (1)
  1. IPILIMUMAB [Suspect]
     Active Substance: IPILIMUMAB
     Indication: DESMOPLASTIC MELANOMA
     Dosage: UNK
     Route: 065
     Dates: start: 20120130

REACTIONS (1)
  - Thyrotoxic crisis [Recovering/Resolving]
